FAERS Safety Report 5798137-8 (Version None)
Quarter: 2008Q2

REPORT INFORMATION
  Report Type: 
  Country: None (occurrence: None)
  Receive Date: 20080620
  Receipt Date: 20080331
  Transmission Date: 20081010
  Serious: Yes (Hospitalization)
  Sender: FDA-Public Use
  Company Number: 2008-BP-04936RO

PATIENT
  Age: 65 Year
  Sex: Female

DRUGS (11)
  1. PREDNISONE [Suspect]
     Indication: B-CELL LYMPHOMA
     Dates: start: 20080301
  2. KLOR-CON [Suspect]
     Indication: BLOOD POTASSIUM DECREASED
     Dosage: 20 MEQ (10 MEQ,2 IN 1 D),PO ; 40 MEQ (10 MEQ,4 IN 1 D),PO
     Route: 048
     Dates: start: 20080208, end: 20080306
  3. KLOR-CON [Suspect]
     Indication: BLOOD POTASSIUM DECREASED
     Dosage: 20 MEQ (10 MEQ,2 IN 1 D),PO ; 40 MEQ (10 MEQ,4 IN 1 D),PO
     Route: 048
     Dates: start: 20080307, end: 20080312
  4. CYTOXAN [Suspect]
     Indication: B-CELL LYMPHOMA
     Dates: start: 20080301
  5. DOXORUBICIN HCL [Suspect]
     Indication: B-CELL LYMPHOMA
     Dates: start: 20080301
  6. VINCRISTINE [Suspect]
     Indication: B-CELL LYMPHOMA
     Dates: start: 20080301
  7. DAPSONE [Concomitant]
  8. DIOVAN [Concomitant]
  9. FLUOXETINE [Concomitant]
  10. HYDROCHLOROTHIAZIDE [Concomitant]
  11. LIPITOR [Concomitant]

REACTIONS (3)
  - DIARRHOEA [None]
  - GASTRIC ULCER HAEMORRHAGE [None]
  - MEDICATION RESIDUE [None]
